FAERS Safety Report 9757343 (Version 1)
Quarter: 2013Q4

REPORT INFORMATION
  Report Type: Spontaneous
  Country: CN (occurrence: CN)
  Receive Date: 20131214
  Receipt Date: 20131214
  Transmission Date: 20140711
  Serious: No
  Sender: FDA-Public Use
  Company Number: CN-B.I. PHARMACEUTICALS,INC./RIDGEFIELD-2013-BI-39943CS

PATIENT
  Age: 48 Year
  Sex: Male

DRUGS (2)
  1. MUCOSOLVAN [Suspect]
     Indication: INCREASED UPPER AIRWAY SECRETION
     Dosage: 20 ML
     Route: 048
     Dates: start: 20131124, end: 20131125
  2. AMOXICILLIN [Concomitant]
     Indication: ANTIBIOTIC THERAPY
     Dates: start: 20131124

REACTIONS (2)
  - Heart rate increased [Recovered/Resolved]
  - Chest discomfort [Recovered/Resolved]
